FAERS Safety Report 16214513 (Version 9)
Quarter: 2019Q3

REPORT INFORMATION
  Report Type: Spontaneous
  Country: US (occurrence: US)
  Receive Date: 20190418
  Receipt Date: 20190830
  Transmission Date: 20191004
  Serious: Yes (Hospitalization)
  Sender: FDA-Public Use
  Company Number: US-ACTELION-A-US2019-189215

PATIENT
  Age: 64 Year
  Sex: Female
  Weight: 68.48 kg

DRUGS (8)
  1. VELETRI [Suspect]
     Active Substance: EPOPROSTENOL
     Dosage: 21.43 NG/KG, PER MIN
     Route: 042
  2. VELETRI [Suspect]
     Active Substance: EPOPROSTENOL
     Indication: PULMONARY ARTERIAL HYPERTENSION
     Dosage: 13 NG/KG, PER MIN
     Route: 042
  3. VELETRI [Suspect]
     Active Substance: EPOPROSTENOL
     Dosage: 25.89 NG/KG, PER MIN
     Route: 042
  4. SILDENAFIL CITRATE. [Concomitant]
     Active Substance: SILDENAFIL CITRATE
  5. ELIQUIS [Concomitant]
     Active Substance: APIXABAN
  6. VELETRI [Suspect]
     Active Substance: EPOPROSTENOL
     Dosage: 32.14 NG/KG, PER MIN
     Route: 042
  7. VELETRI [Suspect]
     Active Substance: EPOPROSTENOL
     Dosage: 30.35 NG/KG, PER MIN
     Route: 042
  8. LETAIRIS [Suspect]
     Active Substance: AMBRISENTAN
     Indication: PRODUCT USED FOR UNKNOWN INDICATION
     Route: 048

REACTIONS (18)
  - Right ventricular failure [Unknown]
  - Peripheral swelling [Unknown]
  - Atrial fibrillation [Unknown]
  - Rash pruritic [Unknown]
  - Ventilation perfusion mismatch [Unknown]
  - Pain in jaw [Unknown]
  - Skin irritation [Unknown]
  - Catheter site erythema [Unknown]
  - Nasal congestion [Unknown]
  - Rash [Unknown]
  - Nausea [Unknown]
  - Catheter site rash [Not Recovered/Not Resolved]
  - Decreased appetite [Unknown]
  - Fluid overload [Unknown]
  - Erythema [Unknown]
  - Diarrhoea [Unknown]
  - Hospice care [Unknown]
  - Catheter site pruritus [Not Recovered/Not Resolved]

NARRATIVE: CASE EVENT DATE: 20190501
